FAERS Safety Report 6313603-4 (Version None)
Quarter: 2009Q3

REPORT INFORMATION
  Report Type: 
  Country: None (occurrence: None)
  Receive Date: 20090814
  Receipt Date: 20090814
  Transmission Date: 20100115
  Serious: Yes (Other)
  Sender: FDA-Public Use
  Company Number: None

PATIENT
  Age: 41 Year
  Sex: Female
  Weight: 73.5 kg

DRUGS (4)
  1. ZYVOX [Suspect]
     Indication: URINARY TRACT INFECTION
     Dosage: 600MG  BID PER TUBE
  2. BUSPAR [Suspect]
     Indication: ANXIETY
     Dosage: 20MG TID PER TUBE
  3. BUSPAR [Suspect]
     Indication: DEPRESSION
     Dosage: 20MG TID PER TUBE
  4. TRAZODONE HCL [Concomitant]

REACTIONS (7)
  - AGITATION [None]
  - ERYTHEMA [None]
  - HYDROCEPHALUS [None]
  - INJURY [None]
  - SEROTONIN SYNDROME [None]
  - TACHYPNOEA [None]
  - TONIC CLONIC MOVEMENTS [None]
